FAERS Safety Report 21922586 (Version 1)
Quarter: 2023Q1

REPORT INFORMATION
  Report Type: Spontaneous
  Country: FR (occurrence: FR)
  Receive Date: 20230128
  Receipt Date: 20230128
  Transmission Date: 20230417
  Serious: Yes (Other)
  Sender: FDA-Public Use
  Company Number: FR-AFSSAPS-PP2023000137

PATIENT
  Age: 87 Year
  Sex: Male
  Weight: 62 kg

DRUGS (4)
  1. AMOXICILLIN [Suspect]
     Active Substance: AMOXICILLIN
     Indication: Cellulitis
     Dosage: 2 GRAM, 3 TIMES A DAY
     Route: 042
     Dates: start: 20221118, end: 20221202
  2. METRONIDAZOLE [Suspect]
     Active Substance: METRONIDAZOLE
     Indication: Cellulitis
     Dosage: 500 MILLIGRAM, 3 TIMES A DAY
     Route: 042
     Dates: start: 20221118
  3. CEFEPIME [Suspect]
     Active Substance: CEFEPIME HYDROCHLORIDE
     Indication: Cellulitis
     Dosage: 2 GRAM, FOUR TIMES/DAY
     Route: 042
     Dates: start: 20221118, end: 20221123
  4. CEFEPIME [Suspect]
     Active Substance: CEFEPIME HYDROCHLORIDE
     Dosage: 2 GRAM, 3 TIMES A DAY
     Route: 042
     Dates: start: 20221124, end: 20221202

REACTIONS (1)
  - Confusional state [Recovering/Resolving]

NARRATIVE: CASE EVENT DATE: 20221121
